FAERS Safety Report 7792509-8 (Version None)
Quarter: 2011Q4

REPORT INFORMATION
  Report Type: 
  Country: None (occurrence: None)
  Receive Date: 20111003
  Receipt Date: 20110922
  Transmission Date: 20120403
  Serious: Yes (Hospitalization)
  Sender: FDA-Public Use
  Company Number: CA-JNJFOC-20110910386

PATIENT
  Sex: Female
  Weight: 86 kg

DRUGS (1)
  1. REMICADE [Suspect]
     Indication: PRODUCT USED FOR UNKNOWN INDICATION
     Dosage: 385 (UNIT UNSPECIFIED), 100MG/VIAL
     Route: 042

REACTIONS (3)
  - FREQUENT BOWEL MOVEMENTS [None]
  - HYSTERECTOMY [None]
  - WEIGHT INCREASED [None]
